FAERS Safety Report 16684862 (Version 1)
Quarter: 2019Q3

REPORT INFORMATION
  Report Type: Spontaneous
  Country: SK (occurrence: SK)
  Receive Date: 20190808
  Receipt Date: 20190808
  Transmission Date: 20191004
  Serious: Yes (Hospitalization, Other)
  Sender: FDA-Public Use
  Company Number: SK-ALLERGAN-1932343US

PATIENT
  Age: 31 Year
  Sex: Female
  Weight: 65 kg

DRUGS (1)
  1. LEVONORGESTREL - BP [Suspect]
     Active Substance: LEVONORGESTREL
     Indication: CONTRACEPTION
     Dosage: 52 MG, SINGLE
     Route: 015
     Dates: start: 20171211, end: 20190404

REACTIONS (3)
  - Drug ineffective [Unknown]
  - Abortion spontaneous [Unknown]
  - Pregnancy [Unknown]

NARRATIVE: CASE EVENT DATE: 20190404
